FAERS Safety Report 4582750-X (Version None)
Quarter: 2005Q1

REPORT INFORMATION
  Report Type: 
  Country: None (occurrence: None)
  Receive Date: 20050127
  Receipt Date: 20041012
  Transmission Date: 20050727
  Serious: Yes (Other)
  Sender: FDA-Public Use
  Company Number: 04-10-1426

PATIENT
  Age: 36 Year
  Sex: Male
  Weight: 81.6475 kg

DRUGS (4)
  1. TRAMADOL - IPI TABLETS [Suspect]
     Indication: PAIN
     Dosage: 50MG Q8HR PRN ORAL
     Route: 048
     Dates: start: 20030416, end: 20040509
  2. PHENYTOIN [Concomitant]
  3. GLIPIZIDE [Concomitant]
  4. METFORMIN HCL [Concomitant]

REACTIONS (6)
  - AGGRESSION [None]
  - CONFUSIONAL STATE [None]
  - DEPRESSION [None]
  - EPISTAXIS [None]
  - HALLUCINATION [None]
  - INSOMNIA [None]
